FAERS Safety Report 9195255 (Version 1)
Quarter: 2013Q1

REPORT INFORMATION
  Report Type: Spontaneous
  Country: US (occurrence: US)
  Receive Date: 20130328
  Receipt Date: 20130328
  Transmission Date: 20140127
  Serious: No
  Sender: FDA-Public Use
  Company Number: US-ALLERGAN-1301083US

PATIENT
  Age: 49 Year
  Sex: Female

DRUGS (2)
  1. LATISSE 0.03% [Suspect]
     Indication: GROWTH OF EYELASHES
     Dosage: UNK
     Route: 061
     Dates: start: 201212, end: 20130106
  2. UNSPECIFIED INGREDIENT [Suspect]
     Indication: SKIN COSMETIC PROCEDURE
     Dosage: UNK
     Route: 061
     Dates: start: 201212

REACTIONS (10)
  - Incorrect dose administered [Unknown]
  - Wrong technique in drug usage process [Unknown]
  - Eyelid skin dryness [Recovering/Resolving]
  - Skin wrinkling [Recovering/Resolving]
  - Urticaria [Recovering/Resolving]
  - Eyelid thickening [Recovering/Resolving]
  - Sunburn [Recovering/Resolving]
  - Application site pain [Recovering/Resolving]
  - Erythema of eyelid [Recovering/Resolving]
  - Urticaria [Recovered/Resolved]
